FAERS Safety Report 7879988-2 (Version None)
Quarter: 2011Q4

REPORT INFORMATION
  Report Type: 
  Country: None (occurrence: None)
  Receive Date: 20111101
  Receipt Date: 20111027
  Transmission Date: 20120403
  Serious: Yes (Other)
  Sender: FDA-Public Use
  Company Number: BR-ABBOTT-11P-020-0869323-00

PATIENT
  Sex: Female
  Weight: 75 kg

DRUGS (6)
  1. METILPREDISONA / FLUOXETINE / CODEINE PHOSPHATE / FAMOTIDINE [Concomitant]
     Indication: ANXIETY
     Dosage: 0.75MG/ 7.5MG/ 10MG/ 20MG
  2. UNKNOWN ANTIBIOTIC [Concomitant]
     Indication: URINARY TRACT INFECTION
  3. ATENOLOL [Concomitant]
     Indication: HYPERTENSION
     Route: 048
  4. METHOTREXATE [Concomitant]
     Indication: ARTHRITIS
     Route: 048
  5. HUMIRA [Suspect]
     Indication: RHEUMATOID ARTHRITIS
     Route: 058
     Dates: start: 20090416
  6. HYDROCHLOROTHIAZIDE [Concomitant]
     Indication: HYPERTENSION
     Route: 048

REACTIONS (4)
  - URINARY TRACT INFECTION [None]
  - RHEUMATOID ARTHRITIS [None]
  - OSTEOARTHRITIS [None]
  - ARTHRALGIA [None]
